FAERS Safety Report 6373182-2 (Version None)
Quarter: 2009Q3

REPORT INFORMATION
  Report Type: 
  Country: None (occurrence: None)
  Receive Date: 20090924
  Receipt Date: 20090528
  Transmission Date: 20100115
  Serious: Yes (Hospitalization, Other)
  Sender: FDA-Public Use
  Company Number: US-ASTRAZENECA-2009UW00601

PATIENT
  Age: 424 Month
  Sex: Male
  Weight: 104.3 kg

DRUGS (4)
  1. SEROQUEL [Suspect]
     Indication: DEPRESSION
     Dosage: 300 MG/200 MG
     Route: 048
     Dates: start: 20030101, end: 20060101
  2. SEROQUEL [Suspect]
     Indication: BIPOLAR DISORDER
     Dosage: 300 MG/200 MG
     Route: 048
     Dates: start: 20030101, end: 20060101
  3. RISPERDAL [Concomitant]
     Dosage: 0.25 TO 1 MG
     Dates: start: 20030101
  4. TRAZODONE [Concomitant]
     Dates: start: 20030101, end: 20040101

REACTIONS (3)
  - DIABETES MELLITUS [None]
  - DIABETIC KETOACIDOSIS [None]
  - SUICIDE ATTEMPT [None]
